FAERS Safety Report 9360869 (Version 2)
Quarter: 2013Q2

REPORT INFORMATION
  Report Type: Spontaneous
  Country: FR (occurrence: None)
  Receive Date: 20130618
  Receipt Date: 20130619
  Transmission Date: 20140414
  Serious: Yes (Death)
  Sender: FDA-Public Use
  Company Number: JPI-P-032859

PATIENT
  Age: 64 Year
  Sex: Male

DRUGS (5)
  1. XYREM(500 MILLIGRAM/MILLILITERS, SOLUTION)(SODIUM OXYBATE) [Suspect]
     Indication: CATAPLEXY
     Dosage: 4.5 GM (2.25 GM, 2 IN 1 D) ORAL
     Route: 048
     Dates: start: 20101105, end: 20110727
  2. HYDROCHLOROTHIAZIDE AND VALSARTAN [Concomitant]
  3. VENLAFAXINE [Concomitant]
  4. METHYLPHENIDATE [Concomitant]
  5. AMLODIPINE [Concomitant]

REACTIONS (4)
  - Lung cancer metastatic [None]
  - Metastases to bone [None]
  - Terminal state [None]
  - Tongue disorder [None]
